FAERS Safety Report 5840912-5 (Version None)
Quarter: 2008Q3

REPORT INFORMATION
  Report Type: 
  Country: None (occurrence: None)
  Receive Date: 20080811
  Receipt Date: 20080801
  Transmission Date: 20090109
  Serious: Yes (Hospitalization, Other)
  Sender: FDA-Public Use
  Company Number: DE-PFIZER INC-2008062178

PATIENT
  Age: 26 Year
  Sex: Female

DRUGS (5)
  1. SERTRALINE [Suspect]
     Indication: BORDERLINE PERSONALITY DISORDER
  2. SERTRALINE [Suspect]
     Indication: MAJOR DEPRESSION
  3. LORAZEPAM [Suspect]
     Indication: BORDERLINE PERSONALITY DISORDER
  4. LORAZEPAM [Suspect]
     Indication: MAJOR DEPRESSION
  5. VITAMIN K TAB [Concomitant]
     Indication: COAGULOPATHY

REACTIONS (6)
  - DRUG INEFFECTIVE [None]
  - HAEMATOMA [None]
  - HALLUCINATION [None]
  - PROTHROMBIN TIME SHORTENED [None]
  - PSYCHOTIC DISORDER [None]
  - SUICIDAL IDEATION [None]
